FAERS Safety Report 18600520 (Version 1)
Quarter: 2020Q4

REPORT INFORMATION
  Report Type: Spontaneous
  Country: GB (occurrence: GB)
  Receive Date: 20201210
  Receipt Date: 20201210
  Transmission Date: 20210114
  Serious: Yes (Life-Threatening, Hospitalization, Other)
  Sender: FDA-Public Use
  Company Number: GB-TEVA-2020-GB-1853589

PATIENT
  Age: 47 Year
  Sex: Female
  Weight: 80 kg

DRUGS (12)
  1. CYTARABINE. [Concomitant]
     Active Substance: CYTARABINE
     Indication: ACUTE MYELOID LEUKAEMIA
  2. VORICONAZOLE 200MG [Concomitant]
     Active Substance: VORICONAZOLE
     Dosage: 400 MILLIGRAM DAILY;
  3. DOXYCYCLINE 50MG [Concomitant]
     Dosage: 50 MILLIGRAM DAILY;
  4. BISOPROLOL 2.5MG [Concomitant]
     Active Substance: BISOPROLOL
     Dosage: 2.5 MILLIGRAM DAILY; DAILY
  5. CYTARABINE. [Concomitant]
     Active Substance: CYTARABINE
     Indication: CHEMOTHERAPY
     Dosage: 3.6 GRAM DAILY; 2 G/M2
     Route: 042
     Dates: start: 20201002, end: 20201006
  6. TESTOSTERONE GEL [Concomitant]
     Active Substance: TESTOSTERONE
  7. UTROGESTAN HRT [Concomitant]
     Route: 065
  8. DIGOXIN 125G [Concomitant]
  9. FLUDARABINE [Suspect]
     Active Substance: FLUDARABINE PHOSPHATE
     Indication: PRODUCT USED FOR UNKNOWN INDICATION
     Dosage: 27.5 MILLIGRAM DAILY;
     Route: 042
     Dates: start: 20200819
  10. CO#TRIMOXAZOLE 480 MG [Concomitant]
     Dosage: MON, WED, FRI
  11. FLUDARABINE [Suspect]
     Active Substance: FLUDARABINE PHOSPHATE
     Dosage: 50 MILLIGRAM DAILY;
     Route: 042
     Dates: start: 20201002
  12. ESTRADIOL TRANSDERMAL SYSTEM [Concomitant]
     Active Substance: ESTRADIOL

REACTIONS (5)
  - Toxicity to various agents [Unknown]
  - Escherichia bacteraemia [Unknown]
  - Atrial flutter [Unknown]
  - Leukoencephalopathy [Not Recovered/Not Resolved]
  - Cellulitis [Unknown]

NARRATIVE: CASE EVENT DATE: 202010
